FAERS Safety Report 9117139 (Version 2)
Quarter: 2013Q1

REPORT INFORMATION
  Report Type: Spontaneous
  Country: US (occurrence: US)
  Receive Date: 20130225
  Receipt Date: 20130329
  Transmission Date: 20140127
  Serious: No
  Sender: FDA-Public Use
  Company Number: US-009507513-1302USA009723

PATIENT
  Sex: Female
  Weight: 108.39 kg

DRUGS (3)
  1. VICTRELIS [Suspect]
     Indication: HEPATITIS C
     Dosage: 200 MG, Q5H
     Route: 048
     Dates: start: 20121010
  2. RIBAVIRIN [Suspect]
     Indication: HEPATITIS C
  3. PEGASYS [Suspect]
     Indication: HEPATITIS C
     Dosage: PFS 4 X 0.5ML KIT

REACTIONS (2)
  - Depression [Unknown]
  - Myalgia [Unknown]
